FAERS Safety Report 20734830 (Version 1)
Quarter: 2022Q2

REPORT INFORMATION
  Report Type: Spontaneous
  Country: US (occurrence: None)
  Receive Date: 20220420
  Receipt Date: 20220420
  Transmission Date: 20220720
  Serious: Yes (unspecified)
  Sender: FDA-Public Use
  Company Number: None

PATIENT
  Age: 43 Year
  Sex: Female
  Weight: 73.35 kg

DRUGS (1)
  1. AIMOVIG [Suspect]
     Active Substance: ERENUMAB-AOOE
     Indication: Migraine
     Dosage: OTHER QUANTITY : 6 INJECTION(S);?OTHER FREQUENCY : MONTHLY;?
     Route: 058
     Dates: start: 20211117

REACTIONS (13)
  - Blood pressure increased [None]
  - Drug ineffective [None]
  - Heart rate increased [None]
  - Fatigue [None]
  - Constipation [None]
  - Dyspepsia [None]
  - Nausea [None]
  - Musculoskeletal stiffness [None]
  - Neck pain [None]
  - Pain [None]
  - Weight increased [None]
  - Tinnitus [None]
  - Feeling abnormal [None]

NARRATIVE: CASE EVENT DATE: 20211117
